FAERS Safety Report 9766382 (Version 1)
Quarter: 2013Q4

REPORT INFORMATION
  Report Type: Spontaneous
  Country: US (occurrence: None)
  Receive Date: 20131216
  Receipt Date: 20131216
  Transmission Date: 20140711
  Serious: No
  Sender: FDA-Public Use
  Company Number: None

PATIENT
  Sex: 0

DRUGS (2)
  1. OXYCONTIN [Suspect]
     Indication: PAIN
     Route: 048
  2. PERCOCET [Suspect]
     Indication: PAIN

REACTIONS (1)
  - Drug hypersensitivity [None]
